FAERS Safety Report 14066267 (Version 1)
Quarter: 2017Q4

REPORT INFORMATION
  Report Type: Spontaneous
  Country: IL (occurrence: IL)
  Receive Date: 20171009
  Receipt Date: 20171009
  Transmission Date: 20180321
  Serious: Yes (Other)
  Sender: FDA-Public Use
  Company Number: IL-TEVA-811304ACC

PATIENT
  Age: 31 Year
  Sex: Female

DRUGS (5)
  1. LUCRIN [Suspect]
     Active Substance: LEUPROLIDE ACETATE
     Dates: start: 201402
  2. DENOSUMAB [Suspect]
     Active Substance: DENOSUMAB
     Dates: start: 201505
  3. LETROZOLE. [Suspect]
     Active Substance: LETROZOLE
     Dates: start: 201505
  4. PALBOCICLIB [Suspect]
     Active Substance: PALBOCICLIB
     Dates: start: 201505
  5. LUCRIN [Suspect]
     Active Substance: LEUPROLIDE ACETATE
     Dates: start: 201505

REACTIONS (1)
  - Disease progression [Unknown]

NARRATIVE: CASE EVENT DATE: 201703
